FAERS Safety Report 10102198 (Version 1)
Quarter: 2014Q2

REPORT INFORMATION
  Report Type: Spontaneous
  Country: US (occurrence: US)
  Receive Date: 20140424
  Receipt Date: 20140424
  Transmission Date: 20141212
  Serious: No
  Sender: FDA-Public Use
  Company Number: US-PFIZER INC-2014110466

PATIENT
  Age: 75 Year
  Sex: Female
  Weight: 90 kg

DRUGS (3)
  1. SUTENT [Suspect]
     Indication: CLEAR CELL RENAL CELL CARCINOMA
     Dosage: 50 MG ONCE A DAY CYCLIC (FOUR WEEKS ON AND TWO WEEKS OFF THERAPY)
     Route: 048
     Dates: start: 201211
  2. SUTENT [Suspect]
     Dosage: 12.5 MG, 1X/DAY
     Route: 048
  3. SUTENT [Suspect]
     Dosage: 37.5 MG, 1X/DAY
     Route: 048
     Dates: end: 201306

REACTIONS (3)
  - Hypotension [Recovered/Resolved]
  - Blood pressure fluctuation [Recovered/Resolved]
  - Drug intolerance [Unknown]
